FAERS Safety Report 5026525-6 (Version None)
Quarter: 2006Q2

REPORT INFORMATION
  Report Type: 
  Country: None (occurrence: None)
  Receive Date: 20060613
  Receipt Date: 20060613
  Transmission Date: 20061013
  Serious: Yes (Other)
  Sender: FDA-Public Use
  Company Number: None

PATIENT
  Sex: Male

DRUGS (1)
  1. PRED ACETATE 1% [Suspect]
     Indication: UVEITIS
     Dosage: 1 GTT OD Q 2 HOURS

REACTIONS (1)
  - PHARMACEUTICAL PRODUCT COMPLAINT [None]
